FAERS Safety Report 5519856-4 (Version None)
Quarter: 2007Q4

REPORT INFORMATION
  Report Type: 
  Country: None (occurrence: None)
  Receive Date: 20071116
  Receipt Date: 20070925
  Transmission Date: 20080405
  Serious: No
  Sender: FDA-Public Use
  Company Number: A0683922A

PATIENT
  Age: 87 Year
  Sex: Male

DRUGS (11)
  1. COREG CR [Suspect]
     Indication: HYPERTENSION
     Dosage: 10MG PER DAY
     Route: 065
     Dates: start: 20070915
  2. IRON SUPPLEMENT [Concomitant]
  3. ISOSORBIDE DINITRATE [Concomitant]
  4. WARFARIN SODIUM [Concomitant]
  5. ALLOPURINOL [Concomitant]
  6. BUMETANIDE [Concomitant]
  7. TUMS [Concomitant]
  8. CENTRUM [Concomitant]
  9. NORVASC [Concomitant]
  10. TRICOR [Concomitant]
  11. FLOMAX [Concomitant]

REACTIONS (2)
  - FEELING ABNORMAL [None]
  - FLATULENCE [None]
